FAERS Safety Report 13273920 (Version 1)
Quarter: 2017Q1

REPORT INFORMATION
  Report Type: Spontaneous
  Country: US (occurrence: US)
  Receive Date: 20170227
  Receipt Date: 20170227
  Transmission Date: 20170428
  Serious: No
  Sender: FDA-Public Use
  Company Number: US-PFIZER INC-2016424728

PATIENT
  Age: 26 Year

DRUGS (1)
  1. RELPAX [Suspect]
     Active Substance: ELETRIPTAN HYDROBROMIDE
     Indication: HEADACHE
     Dosage: 20 MG, UNK (ONE TABLET BY MOUTH/MAY REPEAT AFTER 2 HOURS, NO MORE THAN 2 DOSES IN A 24 HOUR PERIOD)
     Route: 048
     Dates: start: 20160906

REACTIONS (1)
  - Nasopharyngitis [Unknown]
